FAERS Safety Report 21009856 (Version 3)
Quarter: 2024Q1

REPORT INFORMATION
  Report Type: Spontaneous
  Country: US (occurrence: US)
  Receive Date: 20220627
  Receipt Date: 20240327
  Transmission Date: 20240409
  Serious: No
  Sender: FDA-Public Use
  Company Number: US-PFIZER INC-2020466139

PATIENT
  Age: 67 Year
  Sex: Female

DRUGS (2)
  1. INLYTA [Suspect]
     Active Substance: AXITINIB
     Indication: Renal cancer metastatic
     Dosage: 1 MG
     Route: 048
  2. INLYTA [Suspect]
     Active Substance: AXITINIB
     Dosage: 1MG, I TAKE 3 IN THE MORNING AND 3 IN THE EVENING
     Route: 048

REACTIONS (1)
  - Blood pressure increased [Recovered/Resolved]
